FAERS Safety Report 4842738-8 (Version None)
Quarter: 2005Q4

REPORT INFORMATION
  Report Type: 
  Country: None (occurrence: None)
  Receive Date: 20051201
  Receipt Date: 20050930
  Transmission Date: 20060501
  Serious: Yes (Death, Disabling)
  Sender: FDA-Public Use
  Company Number: JP-MERCK-0510USA03534

PATIENT
  Age: 82 Year
  Sex: Male

DRUGS (18)
  1. PEPCID RPD [Suspect]
     Indication: STEROID THERAPY
     Route: 048
     Dates: start: 20050413, end: 20050706
  2. PEPCID RPD [Suspect]
     Route: 048
     Dates: start: 20050707, end: 20050818
  3. HARNAL [Concomitant]
     Indication: BENIGN PROSTATIC HYPERPLASIA
     Route: 048
     Dates: start: 20050413, end: 20051017
  4. PROSTAL [Concomitant]
     Indication: BENIGN PROSTATIC HYPERPLASIA
     Route: 048
     Dates: start: 20050413, end: 20051017
  5. LASIX [Concomitant]
     Route: 048
     Dates: start: 20050413, end: 20051017
  6. S.M. POWDER [Concomitant]
     Indication: GASTRITIS
     Route: 048
     Dates: start: 20050413, end: 20051017
  7. MARZULENE [Concomitant]
     Indication: GASTRITIS
     Route: 048
     Dates: start: 20050413, end: 20051017
  8. VITAMEDIN [Concomitant]
     Route: 048
     Dates: start: 20050413, end: 20051017
  9. PREDNISOLONE [Concomitant]
     Indication: PLEURISY
     Route: 048
     Dates: start: 20050413, end: 20050419
  10. PREDNISOLONE [Concomitant]
     Route: 048
     Dates: start: 20050420, end: 20050426
  11. PREDNISOLONE [Concomitant]
     Route: 048
     Dates: start: 20050427, end: 20050509
  12. PREDNISOLONE [Concomitant]
     Route: 048
     Dates: start: 20050510, end: 20050523
  13. PREDNISOLONE [Concomitant]
     Route: 048
     Dates: start: 20050524, end: 20050530
  14. PREDNISOLONE [Concomitant]
     Route: 048
     Dates: start: 20050531, end: 20050606
  15. PREDNISOLONE [Concomitant]
     Route: 048
     Dates: start: 20050607, end: 20050615
  16. PREDNISOLONE [Concomitant]
     Route: 048
     Dates: start: 20050616, end: 20050713
  17. PREDNISOLONE [Concomitant]
     Route: 048
     Dates: start: 20050714, end: 20051017
  18. LENDORMIN [Concomitant]
     Indication: INSOMNIA
     Route: 048
     Dates: start: 20050413, end: 20051016

REACTIONS (3)
  - DISSEMINATED INTRAVASCULAR COAGULATION [None]
  - OESOPHAGEAL CARCINOMA [None]
  - PLATELET COUNT DECREASED [None]
